FAERS Safety Report 4555807-7 (Version None)
Quarter: 2005Q1

REPORT INFORMATION
  Report Type: 
  Country: None (occurrence: None)
  Receive Date: 20050119
  Receipt Date: 20050107
  Transmission Date: 20050727
  Serious: Yes (Other)
  Sender: FDA-Public Use
  Company Number: US-BRISTOL-MYERS SQUIBB COMPANY-12819850

PATIENT
  Age: 64 Year
  Sex: Female

DRUGS (2)
  1. ESTRACE [Suspect]
     Dates: start: 19930101, end: 20010801
  2. MEDROXYPROGESTERONE [Suspect]
     Dates: start: 19930101, end: 20010801

REACTIONS (1)
  - BREAST CANCER [None]
